FAERS Safety Report 6189617-4 (Version None)
Quarter: 2009Q2

REPORT INFORMATION
  Report Type: 
  Country: None (occurrence: None)
  Receive Date: 20090514
  Receipt Date: 20090508
  Transmission Date: 20091009
  Serious: Yes (Death)
  Sender: FDA-Public Use
  Company Number: DE-ELI_LILLY_AND_COMPANY-DE200905001838

PATIENT
  Sex: Female

DRUGS (3)
  1. ALIMTA [Suspect]
     Indication: NON-SMALL CELL LUNG CANCER
     Dosage: 500 MG/M2, UNK
     Route: 042
     Dates: start: 20090414
  2. DEXAN [Concomitant]
     Indication: PROPHYLAXIS
     Dosage: 4 MG, 2/D
  3. FOLIC ACID [Concomitant]
     Indication: PROPHYLAXIS
     Dosage: 0.4 MG, DAILY (1/D)

REACTIONS (1)
  - PANCYTOPENIA [None]
